FAERS Safety Report 9477943 (Version 1)
Quarter: 2013Q3

REPORT INFORMATION
  Report Type: Spontaneous
  Country: BR (occurrence: BR)
  Receive Date: 20130827
  Receipt Date: 20130827
  Transmission Date: 20140515
  Serious: Yes (Other)
  Sender: FDA-Public Use
  Company Number: BR-JNJFOC-20130809512

PATIENT
  Sex: Female
  Weight: 70 kg

DRUGS (13)
  1. NEOZINE [Concomitant]
     Route: 065
  2. GABAPENTIN [Concomitant]
     Indication: CARDIOVASCULAR DISORDER
     Route: 065
  3. REMICADE [Suspect]
     Indication: BEHCET^S SYNDROME
     Route: 042
     Dates: end: 20130624
  4. REMICADE [Suspect]
     Indication: BEHCET^S SYNDROME
     Dosage: 2 AMPOULES
     Route: 042
     Dates: start: 20120125
  5. REMICADE [Suspect]
     Indication: RHEUMATOID ARTHRITIS
     Route: 042
     Dates: end: 20130624
  6. REMICADE [Suspect]
     Indication: RHEUMATOID ARTHRITIS
     Dosage: 2 AMPOULES
     Route: 042
     Dates: start: 20120125
  7. COLCHICINE [Concomitant]
     Route: 065
  8. CORTICOSTEROID [Concomitant]
     Indication: RHEUMATOID ARTHRITIS
     Route: 065
  9. NEXIUM [Concomitant]
     Indication: GASTRIC DISORDER
     Route: 065
  10. NAPRIX [Concomitant]
     Route: 065
  11. CEBRALAT [Concomitant]
     Indication: CARDIOVASCULAR DISORDER
     Route: 065
  12. HIDANTAL [Concomitant]
     Indication: CONVULSION PROPHYLAXIS
     Route: 065
  13. RIVOTRIL [Concomitant]
     Indication: DEPRESSION
     Route: 065

REACTIONS (13)
  - Convulsion [Not Recovered/Not Resolved]
  - Fall [Not Recovered/Not Resolved]
  - Urinary tract infection [Not Recovered/Not Resolved]
  - Anaemia [Not Recovered/Not Resolved]
  - Thinking abnormal [Not Recovered/Not Resolved]
  - Dizziness [Not Recovered/Not Resolved]
  - Tremor [Not Recovered/Not Resolved]
  - Angiopathy [Not Recovered/Not Resolved]
  - Vision blurred [Not Recovered/Not Resolved]
  - Headache [Not Recovered/Not Resolved]
  - Oropharyngeal pain [Not Recovered/Not Resolved]
  - Therapeutic response unexpected [Unknown]
  - Off label use [Unknown]
